FAERS Safety Report 6719642-3 (Version None)
Quarter: 2010Q2

REPORT INFORMATION
  Report Type: 
  Country: None (occurrence: None)
  Receive Date: 20100507
  Receipt Date: 20100426
  Transmission Date: 20101027
  Serious: Yes (Hospitalization)
  Sender: FDA-Public Use
  Company Number: 1000011593

PATIENT
  Age: 59 Year
  Sex: Female

DRUGS (5)
  1. ESCITALOPRAM [Suspect]
     Dosage: 10 MG (10 MG, 1 IN 1 D) ORAL
     Route: 048
     Dates: start: 20090101, end: 20090515
  2. FURADANTIN [Suspect]
     Indication: URINARY TRACT INFECTION
     Dosage: 21.4286 MG (50 MG, 3 IN 1 WK) ORAL
     Route: 048
     Dates: start: 20060101, end: 20090515
  3. IBUPROFEN [Suspect]
     Dosage: 0.25 DOSAE FORMS (0.5 DOSAGE FORMS, 1 IN 1 D)
     Dates: end: 20091015
  4. DOLIPRANE [Suspect]
     Indication: ARTHRALGIA
     Dosage: 0.25 DOSAGE FORMS (0.5 DOSAGE FORMS, 1 IN 2 D)
     Dates: end: 20091015
  5. CRESTOR [Suspect]
     Dosage: 10 MG (10 MG, 1 IN 1 D) ORAL
     Route: 048
     Dates: start: 20090101, end: 20090515

REACTIONS (2)
  - CYTOLYTIC HEPATITIS [None]
  - HEPATIC FIBROSIS [None]
